FAERS Safety Report 4383358-1 (Version None)
Quarter: 2004Q2

REPORT INFORMATION
  Report Type: 
  Country: None (occurrence: None)
  Receive Date: 20040622
  Receipt Date: 20040622
  Transmission Date: 20050107
  Serious: Yes (Disabling)
  Sender: FDA-Public Use
  Company Number: None

PATIENT
  Age: 75 Year
  Sex: Male

DRUGS (6)
  1. DOFETILIDE  375 MCG (PFIZER) [Suspect]
     Indication: ATRIAL FIBRILLATION
     Dosage: 375 MCG PO BID
     Route: 048
     Dates: start: 20000801, end: 20031201
  2. ATENOLOL [Concomitant]
  3. ALLOPRUINOL [Concomitant]
  4. COUMADIN [Concomitant]
  5. ASPIRIN [Concomitant]
  6. COLCHICINE [Concomitant]

REACTIONS (2)
  - IMPAIRED DRIVING ABILITY [None]
  - NEUROPATHY PERIPHERAL [None]
